FAERS Safety Report 25339702 (Version 1)
Quarter: 2025Q2

REPORT INFORMATION
  Report Type: Report from Study
  Country: US (occurrence: US)
  Receive Date: 20250521
  Receipt Date: 20250521
  Transmission Date: 20250717
  Serious: Yes (Death)
  Sender: AMNEAL
  Company Number: US-AMNEAL PHARMACEUTICALS-2025-AMRX-01888

PATIENT
  Age: 54 Year
  Sex: Male
  Weight: 105 kg

DRUGS (1)
  1. RELEUKO [Suspect]
     Active Substance: FILGRASTIM-AYOW
     Indication: Product used for unknown indication
     Dosage: 480MCG/0.8ML PFS, INJECT 480 MCG DAILY  FOR 7 DAYS EVERY 21 DAYS, ONLY ONE DOSE WAS TAKEN BY PATIENT
     Route: 058
     Dates: start: 20250324, end: 20250324

REACTIONS (1)
  - Death [Fatal]

NARRATIVE: CASE EVENT DATE: 20250511
